FAERS Safety Report 23790177 (Version 1)
Quarter: 2024Q2

REPORT INFORMATION
  Report Type: Spontaneous
  Country: CZ (occurrence: CZ)
  Receive Date: 20240426
  Receipt Date: 20240426
  Transmission Date: 20240716
  Serious: No
  Sender: FDA-Public Use
  Company Number: CZ-Blueprint Medicines Corporation-SP-CZ-2024-000846

PATIENT
  Sex: Male

DRUGS (3)
  1. AVAPRITINIB [Suspect]
     Active Substance: AVAPRITINIB
     Indication: Advanced systemic mastocytosis
     Route: 065
  2. AVAPRITINIB [Suspect]
     Active Substance: AVAPRITINIB
     Route: 065
  3. AVAPRITINIB [Suspect]
     Active Substance: AVAPRITINIB
     Route: 065

REACTIONS (1)
  - Swelling [Recovered/Resolved]
